FAERS Safety Report 25629791 (Version 1)
Quarter: 2025Q3

REPORT INFORMATION
  Report Type: Spontaneous
  Country: CA (occurrence: CA)
  Receive Date: 20250731
  Receipt Date: 20250731
  Transmission Date: 20251021
  Serious: Yes (Other)
  Sender: SANDOZ
  Company Number: CA-SANDOZ-SDZ2025CA054449

PATIENT
  Age: 78 Year
  Sex: Male

DRUGS (5)
  1. AZITHROMYCIN [Suspect]
     Active Substance: AZITHROMYCIN
     Indication: Product used for unknown indication
     Route: 065
  2. CEFOXITIN [Suspect]
     Active Substance: CEFOXITIN SODIUM
     Indication: Product used for unknown indication
     Route: 065
  3. IMIPENEM [Suspect]
     Active Substance: IMIPENEM
     Indication: Product used for unknown indication
     Route: 065
  4. LINEZOLID [Suspect]
     Active Substance: LINEZOLID
     Indication: Product used for unknown indication
     Route: 065
  5. OMADACYCLINE [Suspect]
     Active Substance: OMADACYCLINE
     Indication: Product used for unknown indication
     Route: 065

REACTIONS (9)
  - Vagus nerve disorder [Unknown]
  - Ventricular extrasystoles [Unknown]
  - Supraventricular tachycardia [Unknown]
  - Atrioventricular block second degree [Unknown]
  - Sleep apnoea syndrome [Unknown]
  - Rash [Unknown]
  - Eosinophilia [Unknown]
  - Drug intolerance [Unknown]
  - Drug resistance [Unknown]

NARRATIVE: CASE EVENT DATE: 20250401
